FAERS Safety Report 10006284 (Version 2)
Quarter: 2014Q4

REPORT INFORMATION
  Report Type: Spontaneous
  Country: US (occurrence: US)
  Receive Date: 20140313
  Receipt Date: 20141201
  Transmission Date: 20150528
  Serious: Yes (Hospitalization, Disabling)
  Sender: FDA-Public Use
  Company Number: US-BAYER-2014-037096

PATIENT
  Age: 19 Year
  Sex: Female
  Weight: 68.27 kg

DRUGS (4)
  1. YAZ [Suspect]
     Active Substance: DROSPIRENONE\ETHINYL ESTRADIOL
     Indication: PREMENSTRUAL SYNDROME
     Dosage: UNK
     Dates: start: 200912, end: 201102
  2. ADVIL [Concomitant]
     Active Substance: IBUPROFEN
     Indication: PAIN
     Dosage: OCCASIONAL, USED IN 20 DAYS PRIOR TO INJURY
     Route: 048
  3. IBUPROFEN. [Concomitant]
     Active Substance: IBUPROFEN
  4. DIFLUCAN [Concomitant]
     Active Substance: FLUCONAZOLE
     Dosage: 180 MG, UNK
     Route: 048

REACTIONS (10)
  - Pain in extremity [None]
  - Headache [None]
  - Deep vein thrombosis [None]
  - Product use issue [None]
  - Pain [None]
  - General physical health deterioration [None]
  - Injury [None]
  - Muscular weakness [None]
  - Dizziness [None]
  - Swelling [None]

NARRATIVE: CASE EVENT DATE: 20110208
